FAERS Safety Report 6217546-6 (Version None)
Quarter: 2009Q2

REPORT INFORMATION
  Report Type: 
  Country: None (occurrence: None)
  Receive Date: 20090608
  Receipt Date: 20090205
  Transmission Date: 20091009
  Serious: No
  Sender: FDA-Public Use
  Company Number: A0767160A

PATIENT
  Age: 61 Year
  Sex: Male

DRUGS (1)
  1. WELLBUTRIN XL [Suspect]
     Dosage: 300MG SEE DOSAGE TEXT
     Route: 048
     Dates: start: 20030101

REACTIONS (1)
  - EJACULATION FAILURE [None]
